FAERS Safety Report 8260110-8 (Version None)
Quarter: 2012Q2

REPORT INFORMATION
  Report Type: 
  Country: None (occurrence: None)
  Receive Date: 20120404
  Receipt Date: 20120327
  Transmission Date: 20120825
  Serious: Yes (Death, Life-Threatening, Other)
  Sender: FDA-Public Use
  Company Number: JP-AMGEN-JPNCT2011065263

PATIENT
  Age: 74 Year
  Sex: Male
  Weight: 45 kg

DRUGS (12)
  1. CORTICOSTEROIDS [Concomitant]
     Indication: PROPHYLAXIS
     Dosage: UNK
     Route: 065
  2. METHYCOBAL [Concomitant]
     Indication: NEUROPATHY PERIPHERAL
     Dosage: 500 MG, TID
     Route: 048
     Dates: start: 20091225, end: 20110101
  3. VALPROATE SODIUM [Concomitant]
     Indication: EPILEPSY
     Dosage: 400 MG, BID
     Route: 048
     Dates: start: 20091225, end: 20110101
  4. TS 1 [Suspect]
     Dosage: 100 MG, UNK
     Route: 048
     Dates: start: 20110209, end: 20110615
  5. GASLON N [Concomitant]
     Indication: PROPHYLAXIS
     Dosage: 2 MG, BID
     Route: 048
     Dates: start: 20101013, end: 20110601
  6. ZOFRAN [Concomitant]
     Indication: ALLERGY PROPHYLAXIS
     Dosage: 4 MG, QD
     Route: 048
     Dates: start: 20101013, end: 20101110
  7. CELESTAMINE TAB [Concomitant]
     Indication: ALLERGY PROPHYLAXIS
     Dosage: UNK UNK, BID
     Route: 048
     Dates: start: 20101013, end: 20101110
  8. PANITUMUMAB [Suspect]
     Indication: COLORECTAL CANCER
     Dosage: 6 MG/KG, Q2WK
     Route: 041
     Dates: start: 20101013, end: 20101013
  9. PANITUMUMAB [Suspect]
     Dosage: 6 MG/KG, Q2WK
     Route: 041
     Dates: start: 20101110, end: 20101201
  10. CAPECITABINE [Suspect]
     Indication: COLORECTAL CANCER
     Dosage: 1800 MG, UNK
     Route: 048
     Dates: start: 20101013, end: 20101222
  11. OXALIPLATIN [Concomitant]
     Indication: COLORECTAL CANCER
     Dosage: 130 MG/M2, UNK
     Route: 041
     Dates: start: 20101013, end: 20101201
  12. ANTIHISTAMINES [Concomitant]
     Indication: PROPHYLAXIS
     Dosage: UNK
     Route: 065

REACTIONS (7)
  - NEUTROPHIL COUNT DECREASED [None]
  - INTERSTITIAL LUNG DISEASE [None]
  - ACNE [None]
  - COLORECTAL CANCER [None]
  - DECREASED APPETITE [None]
  - CONJUNCTIVITIS [None]
  - INFUSION RELATED REACTION [None]
